FAERS Safety Report 8011178-5 (Version None)
Quarter: 2011Q4

REPORT INFORMATION
  Report Type: 
  Country: None (occurrence: None)
  Receive Date: 20111228
  Receipt Date: 20111218
  Transmission Date: 20120403
  Serious: Yes (Hospitalization)
  Sender: FDA-Public Use
  Company Number: IT-JNJFOC-20111202725

PATIENT
  Age: 67 Year
  Sex: Male

DRUGS (4)
  1. REMICADE [Suspect]
     Indication: RHEUMATOID ARTHRITIS
     Route: 042
     Dates: end: 20111020
  2. REMICADE [Suspect]
     Route: 042
     Dates: start: 20090801
  3. PLAQUENIL [Concomitant]
     Route: 048
     Dates: start: 20090101, end: 20111015
  4. METHOTREXATE [Concomitant]
     Route: 042
     Dates: start: 20090101, end: 20111015

REACTIONS (1)
  - BASAL CELL CARCINOMA [None]
